FAERS Safety Report 14172261 (Version 1)
Quarter: 2017Q4

REPORT INFORMATION
  Report Type: Spontaneous
  Country: US (occurrence: None)
  Receive Date: 20171108
  Receipt Date: 20171108
  Transmission Date: 20180321
  Serious: Yes (Hospitalization)
  Sender: FDA-Public Use
  Company Number: None

PATIENT
  Age: 65 Year
  Sex: Male
  Weight: 87.09 kg

DRUGS (1)
  1. MILRINONE 1 MG/ML FRESENIUS KABI (MILRINONE LACTATE) [Suspect]
     Active Substance: MILRINONE LACTATE
     Indication: CARDIAC DISORDER
     Dosage: 0.25 MCG/KG/MIN  CONTINUOUS IV
     Route: 042
     Dates: start: 20170921

REACTIONS (3)
  - Renal disorder [None]
  - Blood creatinine increased [None]
  - Blood urea increased [None]

NARRATIVE: CASE EVENT DATE: 20171103
